FAERS Safety Report 19658377 (Version 1)
Quarter: 2021Q3

REPORT INFORMATION
  Report Type: Spontaneous
  Country: IN (occurrence: IN)
  Receive Date: 20210804
  Receipt Date: 20210804
  Transmission Date: 20211014
  Serious: Yes (Hospitalization)
  Sender: FDA-Public Use
  Company Number: IN-PFIZER INC-202100952252

PATIENT
  Age: 73 Year
  Sex: Female

DRUGS (3)
  1. ZOLDONAT [Concomitant]
     Dosage: 4 MG
     Route: 042
  2. PALBACE [Suspect]
     Active Substance: PALBOCICLIB
     Dosage: 100 MG, CYCLIC
     Route: 048
     Dates: start: 20210716
  3. FEMARA [Concomitant]
     Active Substance: LETROZOLE
     Dosage: UNK, DAILY

REACTIONS (4)
  - Dyspnoea [Unknown]
  - Off label use [Unknown]
  - Product use issue [Unknown]
  - Arthralgia [Unknown]
